FAERS Safety Report 9519918 (Version 2)
Quarter: 2014Q1

REPORT INFORMATION
  Report Type: Spontaneous
  Country: US (occurrence: US)
  Receive Date: 20130912
  Receipt Date: 20140205
  Transmission Date: 20141002
  Serious: Yes (Hospitalization)
  Sender: FDA-Public Use
  Company Number: US-BAYER-2013-109740

PATIENT
  Age: 39 Year
  Sex: Female
  Weight: 58.96 kg

DRUGS (1)
  1. MIRENA [Suspect]
     Indication: CONTRACEPTION
     Dosage: 20 MCG/24HR, CONT
     Route: 015
     Dates: start: 20090824, end: 20120614

REACTIONS (12)
  - Stress [None]
  - Menorrhagia [None]
  - Device issue [None]
  - Uterine perforation [None]
  - Pregnancy with contraceptive device [None]
  - Drug ineffective [None]
  - Device dislocation [None]
  - Injury [None]
  - Pain [None]
  - Emotional distress [None]
  - Depression [None]
  - Anxiety [None]
